FAERS Safety Report 9197494 (Version 1)
Quarter: 2013Q1

REPORT INFORMATION
  Report Type: Spontaneous
  Country: CA (occurrence: CA)
  Receive Date: 20130328
  Receipt Date: 20130328
  Transmission Date: 20140127
  Serious: Yes (Hospitalization)
  Sender: FDA-Public Use
  Company Number: CA-B.I. PHARMACEUTICALS,INC./RIDGEFIELD-2013-CN-00453CN

PATIENT
  Age: 78 Year
  Sex: Male

DRUGS (3)
  1. PRADAXA [Suspect]
     Indication: ATRIAL FIBRILLATION
     Dosage: 300 MG
     Dates: start: 20110823
  2. PRADAXA [Suspect]
     Dosage: 220 MG
     Dates: start: 20110831
  3. MEDICATION NOT FURTHER SPECIFIED [Concomitant]

REACTIONS (2)
  - Urine flow decreased [Recovered/Resolved]
  - Haematuria [Recovered/Resolved]
